FAERS Safety Report 12633771 (Version 1)
Quarter: 2016Q3

REPORT INFORMATION
  Report Type: Spontaneous
  Country: SE (occurrence: SE)
  Receive Date: 20160809
  Receipt Date: 20160809
  Transmission Date: 20161109
  Serious: Yes (Other)
  Sender: FDA-Public Use
  Company Number: SE-PFIZER INC-2016373553

PATIENT
  Age: 30 Year
  Sex: Male

DRUGS (3)
  1. FENTANYL. [Suspect]
     Active Substance: FENTANYL
     Dates: start: 20160723, end: 20160723
  2. XANOR [Suspect]
     Active Substance: ALPRAZOLAM
     Dosage: ONE TABLET
     Dates: start: 20160723, end: 20160723
  3. FLUNITRAZEPAM [Suspect]
     Active Substance: FLUNITRAZEPAM
     Dosage: 3 TABLETS
     Dates: start: 20160723, end: 20160723

REACTIONS (3)
  - Toxicity to various agents [Recovered/Resolved]
  - Lethargy [Recovered/Resolved]
  - Intentional overdose [Recovered/Resolved]

NARRATIVE: CASE EVENT DATE: 20160723
